FAERS Safety Report 19731996 (Version 2)
Quarter: 2021Q3

REPORT INFORMATION
  Report Type: Spontaneous
  Country: US (occurrence: US)
  Receive Date: 20210820
  Receipt Date: 20210823
  Transmission Date: 20211014
  Serious: Yes (Other)
  Sender: FDA-Public Use
  Company Number: US-SA-2021SA275875

PATIENT
  Sex: Male

DRUGS (5)
  1. ELIQUIS [Suspect]
     Active Substance: APIXABAN
     Dosage: 5 MG, Q12H
  2. PLAVIX [Suspect]
     Active Substance: CLOPIDOGREL BISULFATE
  3. ELIQUIS [Suspect]
     Active Substance: APIXABAN
     Dosage: 2.5 MG, Q12H
  4. ASPIRINE [Suspect]
     Active Substance: ASPIRIN
     Dosage: 25 MG
  5. ELIQUIS [Suspect]
     Active Substance: APIXABAN

REACTIONS (6)
  - Atrial fibrillation [Unknown]
  - Weight decreased [Unknown]
  - Cardiac pacemaker insertion [Unknown]
  - Colonoscopy [Unknown]
  - Internal haemorrhage [Unknown]
  - Heart rate decreased [Unknown]
